FAERS Safety Report 9647491 (Version 1)
Quarter: 2013Q4

REPORT INFORMATION
  Report Type: Report from Study
  Country: BR (occurrence: BR)
  Receive Date: 20131028
  Receipt Date: 20131028
  Transmission Date: 20140711
  Serious: Yes (Other)
  Sender: FDA-Public Use
  Company Number: BR-ROCHE-1295136

PATIENT
  Age: 46 Year
  Sex: Female
  Weight: 113 kg

DRUGS (5)
  1. XOLAIR [Suspect]
     Indication: BRONCHITIS
     Route: 065
  2. XOLAIR [Suspect]
     Route: 065
  3. SERETIDE [Concomitant]
  4. HYDROCHLOROTHIAZIDE [Concomitant]
  5. METILDOPA [Concomitant]

REACTIONS (2)
  - Glaucoma [Recovering/Resolving]
  - Hypertension [Recovering/Resolving]
